FAERS Safety Report 20165204 (Version 5)
Quarter: 2022Q1

REPORT INFORMATION
  Report Type: Report from Study
  Country: ES (occurrence: ES)
  Receive Date: 20211209
  Receipt Date: 20220310
  Transmission Date: 20220423
  Serious: Yes (Hospitalization)
  Sender: FDA-Public Use
  Company Number: ES-BRISTOL-MYERS SQUIBB COMPANY-BMS-2021-130801

PATIENT
  Age: 75 Year
  Sex: Male
  Weight: 88 kg

DRUGS (12)
  1. NIVOLUMAB [Suspect]
     Active Substance: NIVOLUMAB
     Indication: Small cell lung cancer extensive stage
     Dosage: 240 MILLIGRAM
     Route: 042
     Dates: start: 20210927, end: 20210927
  2. ETOPOSIDE [Suspect]
     Active Substance: ETOPOSIDE
     Indication: Small cell lung cancer extensive stage
     Dosage: 200 MILLIGRAM
     Route: 042
     Dates: start: 20210927, end: 20210927
  3. ETOPOSIDE [Suspect]
     Active Substance: ETOPOSIDE
     Dosage: UNK
     Route: 065
     Dates: start: 20211215
  4. CISPLATIN [Suspect]
     Active Substance: CISPLATIN
     Indication: Small cell lung cancer extensive stage
     Dosage: 150 MILLIGRAM
     Route: 042
     Dates: start: 20210927, end: 20210927
  5. CISPLATIN [Suspect]
     Active Substance: CISPLATIN
     Dosage: UNK
     Route: 065
     Dates: start: 20211215
  6. PULRODEMSTAT BESILATE [Suspect]
     Active Substance: PULRODEMSTAT BESILATE
     Indication: Small cell lung cancer extensive stage
     Dosage: 40 MILLIGRAM
     Route: 048
     Dates: start: 20210927, end: 20210927
  7. PULRODEMSTAT BESILATE [Suspect]
     Active Substance: PULRODEMSTAT BESILATE
     Dosage: UNK
     Route: 065
     Dates: start: 20211215
  8. BUDESONIDE [Concomitant]
     Active Substance: BUDESONIDE
     Indication: Dyspnoea
     Dosage: 200 MICROGRAM, BID
     Dates: start: 20210927
  9. FILGRASTIM [Concomitant]
     Active Substance: FILGRASTIM
     Indication: Prophylaxis
     Dosage: 480 MICROGRAM, QD
     Route: 058
     Dates: start: 20211111, end: 20211115
  10. GRANISETRON [Concomitant]
     Active Substance: GRANISETRON
     Indication: Prophylaxis
     Dosage: 3 MILLIGRAM, QD
     Route: 042
     Dates: start: 20211108, end: 20211110
  11. IPRATROPIUM BROMIDE [Concomitant]
     Active Substance: IPRATROPIUM BROMIDE
     Indication: Dyspnoea
     Dosage: 20 MICROGRAM, QID
     Dates: start: 20210927
  12. ALBUTEROL [Concomitant]
     Active Substance: ALBUTEROL
     Indication: Dyspnoea
     Dosage: 100 MICROGRAM, TID
     Dates: start: 20210927

REACTIONS (1)
  - Ataxia [Recovering/Resolving]

NARRATIVE: CASE EVENT DATE: 20211122
